FAERS Safety Report 20870628 (Version 2)
Quarter: 2022Q2

REPORT INFORMATION
  Report Type: Spontaneous
  Country: US (occurrence: US)
  Receive Date: 20220525
  Receipt Date: 20220629
  Transmission Date: 20220721
  Serious: No
  Sender: FDA-Public Use
  Company Number: US-PFIZER INC-202200661781

PATIENT
  Age: 11 Year
  Sex: Male
  Weight: 43.084 kg

DRUGS (1)
  1. GENOTROPIN [Suspect]
     Active Substance: SOMATROPIN
     Indication: Growth disorder
     Dosage: 1.2 MG (SETTING ON THE PEN EVERY NIGHT BEFORE BED)
     Dates: start: 2021

REACTIONS (1)
  - Wrong technique in device usage process [Unknown]
